FAERS Safety Report 18041903 (Version 1)
Quarter: 2020Q3

REPORT INFORMATION
  Report Type: Report from Study
  Country: AR (occurrence: AR)
  Receive Date: 20200720
  Receipt Date: 20200720
  Transmission Date: 20201103
  Serious: Yes (Life-Threatening, Hospitalization, Other)
  Sender: FDA-Public Use
  Company Number: AR-AMGEN-ARGSP2020106746

PATIENT
  Age: 14 Year
  Sex: Male

DRUGS (3)
  1. BLINCYTO [Suspect]
     Active Substance: BLINATUMOMAB
     Indication: ACUTE LYMPHOCYTIC LEUKAEMIA
     Dosage: 28 MICROGRAM, QD (10 ML/HOUR)
     Route: 042
     Dates: start: 20200625, end: 20200628
  2. BLINCYTO [Suspect]
     Active Substance: BLINATUMOMAB
     Dosage: 28 MICROGRAM, QD (10 ML/HOUR)
     Route: 042
     Dates: start: 20200630
  3. BLINCYTO [Suspect]
     Active Substance: BLINATUMOMAB
     Indication: MINIMAL RESIDUAL DISEASE
     Dosage: UNK (LOWERED DOSE AT 7 ML/HOUR AND IT WAS GRADUALLY INCREASED)
     Route: 042
     Dates: start: 20200629

REACTIONS (10)
  - Urinary incontinence [Unknown]
  - Confusional state [Recovered/Resolved]
  - Pyrexia [Unknown]
  - Intensive care [Unknown]
  - Vomiting [Unknown]
  - Tremor [Recovered/Resolved]
  - Hypocalcaemia [Not Recovered/Not Resolved]
  - Hypersensitivity [Unknown]
  - Disorientation [Recovered/Resolved]
  - Memory impairment [Unknown]

NARRATIVE: CASE EVENT DATE: 20200625
